FAERS Safety Report 9415586 (Version 2)
Quarter: 2013Q3

REPORT INFORMATION
  Report Type: Report from Study
  Country: US (occurrence: US)
  Receive Date: 20130723
  Receipt Date: 20130815
  Transmission Date: 20140515
  Serious: Yes (Hospitalization)
  Sender: FDA-Public Use
  Company Number: US-CELGENEUS-163-21880-13071348

PATIENT
  Age: 69 Year
  Sex: Male
  Weight: 81.6 kg

DRUGS (10)
  1. REVLIMID [Suspect]
     Indication: HODGKIN^S DISEASE
     Route: 048
     Dates: start: 20130627, end: 20130702
  2. REVLIMID [Suspect]
     Route: 048
     Dates: start: 20130715, end: 20130717
  3. PANOBINOSTAT [Suspect]
     Indication: HODGKIN^S DISEASE
     Route: 048
     Dates: start: 20130627, end: 20130701
  4. PANOBINOSTAT [Suspect]
     Route: 048
     Dates: start: 20130715, end: 20130717
  5. COLACE [Concomitant]
     Indication: PRODUCT USED FOR UNKNOWN INDICATION
     Route: 065
     Dates: start: 20130621
  6. LORAZEPAM [Concomitant]
     Indication: PRODUCT USED FOR UNKNOWN INDICATION
     Route: 065
     Dates: start: 20130627
  7. OXYCODONE [Concomitant]
     Indication: PRODUCT USED FOR UNKNOWN INDICATION
     Route: 065
     Dates: start: 20130627
  8. PROCHLORPERAZINE [Concomitant]
     Indication: PRODUCT USED FOR UNKNOWN INDICATION
     Route: 065
     Dates: start: 20130627
  9. VALACYCLOVIR [Concomitant]
     Indication: PRODUCT USED FOR UNKNOWN INDICATION
     Route: 065
     Dates: start: 20130627
  10. ASPIRIN [Concomitant]
     Indication: PRODUCT USED FOR UNKNOWN INDICATION
     Route: 065
     Dates: start: 20130627

REACTIONS (2)
  - Cholangitis [Recovered/Resolved]
  - Liver function test abnormal [Recovering/Resolving]
